FAERS Safety Report 23627869 (Version 1)
Quarter: 2024Q1

REPORT INFORMATION
  Report Type: Spontaneous
  Country: US (occurrence: None)
  Receive Date: 20240313
  Receipt Date: 20240313
  Transmission Date: 20240410
  Serious: No
  Sender: FDA-Public Use
  Company Number: None

PATIENT
  Age: 47 Year
  Sex: Female

DRUGS (1)
  1. TALTZ [Suspect]
     Active Substance: IXEKIZUMAB
     Indication: Psoriasis
     Dosage: FREQUENCY : MONTHLY;?
     Route: 058
     Dates: start: 202310

REACTIONS (3)
  - Neoplasm malignant [None]
  - Refusal of treatment by patient [None]
  - Hysterectomy [None]
